FAERS Safety Report 8939923 (Version 3)
Quarter: 2013Q1

REPORT INFORMATION
  Report Type: Spontaneous
  Country: US (occurrence: US)
  Receive Date: 20121203
  Receipt Date: 20130322
  Transmission Date: 20140127
  Serious: No
  Sender: FDA-Public Use
  Company Number: US-009507513-1211USA012111

PATIENT
  Sex: Female

DRUGS (4)
  1. PEG-INTRON [Suspect]
     Indication: HEPATITIS C
     Dosage: UNK
     Dates: start: 20121118
  2. PEG-INTRON [Suspect]
     Dosage: UNK
     Route: 058
     Dates: start: 20060101, end: 20060301
  3. RIBAVIRIN [Suspect]
     Indication: HEPATITIS C
     Dosage: UNK
     Dates: start: 20121118
  4. RIBAVIRIN [Suspect]
     Dosage: UNK
     Route: 048
     Dates: start: 20060101, end: 20060301

REACTIONS (5)
  - Hypoaesthesia [Not Recovered/Not Resolved]
  - Tremor [Not Recovered/Not Resolved]
  - Osteoporosis [Not Recovered/Not Resolved]
  - No therapeutic response [Unknown]
  - Bone pain [Unknown]
